FAERS Safety Report 9326805 (Version 2)
Quarter: 2014Q2

REPORT INFORMATION
  Report Type: Spontaneous
  Country: AU (occurrence: None)
  Receive Date: 20130522
  Receipt Date: 20130522
  Transmission Date: 20141212
  Serious: Yes (Hospitalization)
  Sender: FDA-Public Use
  Company Number: GAM-131-13-AU

PATIENT
  Age: 41 Year
  Sex: Female

DRUGS (3)
  1. OCTAGAM [Suspect]
     Indication: GUILLAIN-BARRE SYNDROME
     Dosage: 5X 1/CYCLICAL
     Route: 042
     Dates: start: 20130428, end: 20130502
  2. GABAPENTIN [Concomitant]
  3. PREDNISOLONE [Concomitant]

REACTIONS (4)
  - Haemolysis [None]
  - Chromaturia [None]
  - Lethargy [None]
  - Tachycardia [None]
